FAERS Safety Report 6878146-8 (Version None)
Quarter: 2010Q2

REPORT INFORMATION
  Report Type: 
  Country: None (occurrence: None)
  Receive Date: 20100623
  Receipt Date: 20090803
  Transmission Date: 20101027
  Serious: Yes (Other)
  Sender: FDA-Public Use
  Company Number: 2009BH012331

PATIENT
  Age: 72 Year
  Sex: Male

DRUGS (19)
  1. HEPARIN SODIUM [Suspect]
     Indication: DRUG USE FOR UNKNOWN INDICATION
     Dosage: IV
     Route: 042
     Dates: start: 20090513, end: 20090516
  2. FEBUXOSTAT [Suspect]
     Indication: GOUT
     Dosage: 80 MG; EVERY DAY; PO; 40 MG;EVERY DAY;PO; 80 MG; EVERY DAY; PO
     Dates: start: 20090504, end: 20090512
  3. FEBUXOSTAT [Suspect]
     Indication: GOUT
     Dosage: 80 MG; EVERY DAY; PO; 40 MG;EVERY DAY;PO; 80 MG; EVERY DAY; PO
     Dates: start: 20090513, end: 20090526
  4. FEBUXOSTAT [Suspect]
     Indication: GOUT
     Dosage: 80 MG; EVERY DAY; PO; 40 MG;EVERY DAY;PO; 80 MG; EVERY DAY; PO
     Dates: start: 20090101
  5. VOLTAREN [Concomitant]
  6. BUMETANIDE [Concomitant]
  7. CAPTOPRIL [Concomitant]
  8. CIPROFLOXACIN [Concomitant]
  9. VOLTAREN [Concomitant]
  10. DIGOXIN [Concomitant]
  11. LANTUS [Concomitant]
  12. IPRATROPIUM BROMIDE [Concomitant]
  13. IMDUR [Concomitant]
  14. PENTOXIFYLLINE [Concomitant]
  15. ACTONEL [Concomitant]
  16. ZOCOR [Concomitant]
  17. SPIRONOLACTONE [Concomitant]
  18. WARFARIN SODIUM [Concomitant]
  19. LINEZOLID [Suspect]
     Indication: DRUG USE FOR UNKNOWN INDICATION
     Dosage: 600 MG;2X A DAY; PO
     Dates: end: 20090519

REACTIONS (1)
  - HEPARIN-INDUCED THROMBOCYTOPENIA [None]
